FAERS Safety Report 5710118-9 (Version None)
Quarter: 2008Q2

REPORT INFORMATION
  Report Type: 
  Country: None (occurrence: None)
  Receive Date: 20080418
  Receipt Date: 20071121
  Transmission Date: 20081010
  Serious: No
  Sender: FDA-Public Use
  Company Number: US-ASTRAZENECA-2007UW26889

PATIENT
  Age: 59 Year
  Sex: Female
  Weight: 90.9 kg

DRUGS (4)
  1. METOPROLOL SUCCINATE [Suspect]
  2. DIAZEPAM [Concomitant]
  3. PLAVIX [Concomitant]
  4. BETHENECOL [Concomitant]

REACTIONS (5)
  - CHEST PAIN [None]
  - HEAD DISCOMFORT [None]
  - RASH [None]
  - STOMACH DISCOMFORT [None]
  - WEIGHT INCREASED [None]
